FAERS Safety Report 5477627-1 (Version None)
Quarter: 2007Q4

REPORT INFORMATION
  Report Type: 
  Country: None (occurrence: None)
  Receive Date: 20071002
  Receipt Date: 20070918
  Transmission Date: 20080405
  Serious: Yes (Disabling)
  Sender: FDA-Public Use
  Company Number: 2007EU001934

PATIENT
  Age: 68 Year
  Sex: Male
  Weight: 70 kg

DRUGS (8)
  1. PROGRAF [Suspect]
     Indication: RENAL TRANSPLANT
     Dosage: 1.5 MG, IUD/QD, ORAL
     Route: 048
     Dates: start: 20051201
  2. CELLCEPT [Concomitant]
  3. PREZOLONE             (PREDNISOLONE) [Concomitant]
  4. ZANTAC 150 [Concomitant]
  5. ZYLORIC [Concomitant]
  6. TENORMIN [Concomitant]
  7. NORVASC [Concomitant]
  8. TROPHICARD             (MAGNESIUM ASPARTATE, ASPARTATE POTASSIUM) [Concomitant]

REACTIONS (1)
  - PULMONARY FIBROSIS [None]
